FAERS Safety Report 8954533 (Version 3)
Quarter: 2013Q4

REPORT INFORMATION
  Report Type: Spontaneous
  Country: JP (occurrence: JP)
  Receive Date: 20121210
  Receipt Date: 20131211
  Transmission Date: 20140711
  Serious: Yes (Other)
  Sender: FDA-Public Use
  Company Number: PHHY2012JP112651

PATIENT
  Age: 64 Year
  Sex: Female

DRUGS (4)
  1. ZOMETA [Suspect]
     Indication: PLASMA CELL MYELOMA
     Dosage: 4 MG, ONCE IN EVERY TWO MONTHS
     Route: 041
  2. CEFCAPENE PIVOXIL HYDROCHLORIDE [Concomitant]
  3. CLARITHROMYCIN [Concomitant]
  4. MOUTH WASH [Concomitant]

REACTIONS (6)
  - Osteonecrosis of jaw [Recovering/Resolving]
  - Periodontitis [Recovering/Resolving]
  - Gingival erythema [Unknown]
  - Gingival swelling [Unknown]
  - Paraesthesia [Unknown]
  - Osteitis [Unknown]
